FAERS Safety Report 6577961-8 (Version None)
Quarter: 2010Q1

REPORT INFORMATION
  Report Type: 
  Country: None (occurrence: None)
  Receive Date: 20100211
  Receipt Date: 20100205
  Transmission Date: 20100710
  Serious: Yes (Hospitalization, Other)
  Sender: FDA-Public Use
  Company Number: RO-BRISTOL-MYERS SQUIBB COMPANY-14951321

PATIENT
  Age: 35 Year
  Sex: Male

DRUGS (2)
  1. BARACLUDE [Suspect]
     Indication: HEPATITIS B
     Route: 048
     Dates: start: 20100122
  2. HYDREA [Suspect]
     Dosage: DOSE INCREASED FROM 4 TO 5TABS

REACTIONS (2)
  - DRUG INTERACTION [None]
  - THROMBOCYTOSIS [None]
